FAERS Safety Report 15955019 (Version 1)
Quarter: 2019Q1

REPORT INFORMATION
  Report Type: Spontaneous
  Country: US (occurrence: US)
  Receive Date: 20190121
  Receipt Date: 20190121
  Transmission Date: 20190417
  Serious: No
  Sender: FDA-Public Use
  Company Number: None

PATIENT
  Age: 60 Year
  Sex: Female

DRUGS (7)
  1. LYNPARZA [Suspect]
     Active Substance: OLAPARIB
     Indication: BREAST CANCER
     Route: 048
     Dates: start: 20190101
  2. ZOFRAN [Concomitant]
     Active Substance: ONDANSETRON HYDROCHLORIDE
  3. LYNPARZA [Suspect]
     Active Substance: OLAPARIB
     Indication: DISEASE SUSCEPTIBILITY
     Route: 048
     Dates: start: 20190101
  4. LYNPARZA [Suspect]
     Active Substance: OLAPARIB
     Indication: BREAST CANCER FEMALE
  5. ZYRTEC [Concomitant]
     Active Substance: CETIRIZINE HYDROCHLORIDE
  6. PREDNISONE. [Concomitant]
     Active Substance: PREDNISONE
  7. GABAPENTIN. [Concomitant]
     Active Substance: GABAPENTIN

REACTIONS (1)
  - Pneumonitis [None]

NARRATIVE: CASE EVENT DATE: 20190119
